FAERS Safety Report 5376361-6 (Version None)
Quarter: 2007Q2

REPORT INFORMATION
  Report Type: 
  Country: None (occurrence: None)
  Receive Date: 20070627
  Receipt Date: 20060504
  Transmission Date: 20071010
  Serious: Yes (Other)
  Sender: FDA-Public Use
  Company Number: 2006059259

PATIENT
  Age: 62 Year
  Sex: Female
  Weight: 67.1324 kg

DRUGS (6)
  1. NICOTROL [Suspect]
     Indication: SMOKING CESSATION THERAPY
     Dosage: 2 CARTRIDGES DAILY, INHALATION
     Route: 055
  2. DIPHENHYDRAMINE HYDROCHLORIDE [Concomitant]
  3. OXYCODONE HCL [Concomitant]
  4. METOPROLOL TARTRATE [Concomitant]
  5. TRAZODONE HCL [Concomitant]
  6. DIAZEPAM [Concomitant]

REACTIONS (2)
  - DRUG DEPENDENCE [None]
  - INCORRECT DRUG ADMINISTRATION DURATION [None]
